FAERS Safety Report 9096638 (Version 1)
Quarter: 2013Q1

REPORT INFORMATION
  Report Type: Spontaneous
  Country: NL (occurrence: None)
  Receive Date: 20130125
  Receipt Date: 20130125
  Transmission Date: 20140127
  Serious: Yes (Hospitalization, Other)
  Sender: FDA-Public Use
  Company Number: THQ2013A00449

PATIENT
  Age: 66 Year
  Sex: Female

DRUGS (2)
  1. ACTOS (PIOGLITAZONE HYDROCHLORIDE) [Suspect]
     Indication: DIABETES MELLITUS
     Dosage: 1 D
     Route: 048
     Dates: start: 2008, end: 20121218
  2. METFORMIN (METFORMIN HYDROCHLORIDE) [Concomitant]

REACTIONS (2)
  - Ureteric cancer [None]
  - Bladder cancer recurrent [None]
